FAERS Safety Report 6133303-3 (Version None)
Quarter: 2009Q1

REPORT INFORMATION
  Report Type: 
  Country: None (occurrence: None)
  Receive Date: 20090326
  Receipt Date: 20090316
  Transmission Date: 20090719
  Serious: Yes (Hospitalization)
  Sender: FDA-Public Use
  Company Number: BR-BAYER-BR-2007-034728

PATIENT
  Age: 26 Year
  Sex: Female

DRUGS (2)
  1. YASMIN [Suspect]
     Indication: ORAL CONTRACEPTION
     Dosage: 1 TAB(S), 21D/28D [DAILY DOSE: 1 TAB(S)]
     Route: 048
     Dates: start: 20060501, end: 20080101
  2. NATELE [Concomitant]
     Indication: VITAMIN SUPPLEMENTATION
     Route: 048
     Dates: start: 20080301

REACTIONS (12)
  - ABDOMINAL PAIN [None]
  - DIZZINESS [None]
  - GENITAL HAEMORRHAGE [None]
  - HEADACHE [None]
  - LUTEAL PHASE DEFICIENCY [None]
  - MALAISE [None]
  - PREGNANCY ON ORAL CONTRACEPTIVE [None]
  - PREMATURE SEPARATION OF PLACENTA [None]
  - PROGESTERONE DECREASED [None]
  - RETCHING [None]
  - URINARY TRACT INFECTION [None]
  - VOMITING [None]
